FAERS Safety Report 6840792-5 (Version None)
Quarter: 2010Q3

REPORT INFORMATION
  Report Type: 
  Country: None (occurrence: None)
  Receive Date: 20100714
  Receipt Date: 20060806
  Transmission Date: 20110219
  Serious: No
  Sender: FDA-Public Use
  Company Number: US-PFIZER INC-2006099867

PATIENT
  Sex: Female
  Weight: 77.11 kg

DRUGS (5)
  1. CHANTIX [Suspect]
     Indication: SMOKING CESSATION THERAPY
     Route: 048
     Dates: start: 20060730
  2. XANAX [Concomitant]
     Indication: ANXIETY
     Route: 048
  3. TOPROL-XL [Concomitant]
     Route: 048
  4. FISH OIL [Concomitant]
     Route: 065
  5. VITAMIN E [Concomitant]
     Route: 065

REACTIONS (2)
  - COUGH [None]
  - NASAL DISORDER [None]
